FAERS Safety Report 21168117 (Version 1)
Quarter: 2022Q3

REPORT INFORMATION
  Report Type: Spontaneous
  Country: GB (occurrence: GB)
  Receive Date: 20220803
  Receipt Date: 20220803
  Transmission Date: 20221026
  Serious: Yes (Other)
  Sender: FDA-Public Use
  Company Number: GB-Zentiva-2022-ZT-006455

PATIENT
  Sex: Female

DRUGS (1)
  1. INDAPAMIDE [Suspect]
     Active Substance: INDAPAMIDE
     Indication: Product used for unknown indication
     Dosage: 2.5 MILLIGRAM, QD (ONCE IN THE MORNING)
     Route: 048

REACTIONS (3)
  - Product dispensing error [Recovered/Resolved]
  - Therapy interrupted [Recovered/Resolved]
  - Blood pressure systolic increased [Unknown]
